FAERS Safety Report 26120036 (Version 1)
Quarter: 2025Q4

REPORT INFORMATION
  Report Type: Spontaneous
  Country: EU (occurrence: EU)
  Receive Date: 20251204
  Receipt Date: 20251204
  Transmission Date: 20260117
  Serious: Yes (Disabling, Other)
  Sender: RANBAXY
  Company Number: None

PATIENT
  Age: 38 Year
  Sex: Female
  Weight: 70 kg

DRUGS (8)
  1. TESTOSTERONE [Suspect]
     Active Substance: TESTOSTERONE
     Indication: Product used for unknown indication
     Dosage: 250 MILLIGRAM, BIWEEKLY
     Route: 065
     Dates: start: 19980101, end: 1999
  2. TESTOSTERONE [Suspect]
     Active Substance: TESTOSTERONE
     Indication: Transgender hormonal therapy
     Dosage: 1000 MILLIGRAM, 1/WEEK, Q12W
     Route: 030
     Dates: start: 20110101
  3. TESTOSTERONE [Suspect]
     Active Substance: TESTOSTERONE
     Indication: Transgender hormonal therapy
     Dosage: 100 MILLIGRAM, 1/WEEK
     Route: 030
  4. TESTOSTERONE [Suspect]
     Active Substance: TESTOSTERONE
     Indication: Transgender hormonal therapy
     Dosage: 250 MILLIGRAM, 1DOSE/2 WEEKS, Q2WK
     Route: 030
     Dates: start: 19980101, end: 2009
  5. TESTOSTERONE [Suspect]
     Active Substance: TESTOSTERONE
     Indication: Transgender hormonal therapy
     Dosage: 250 MILLIGRAM, 1 DOSE/3 WEEKS, Q3WK
     Route: 065
     Dates: start: 1999
  6. NEBIDO [Suspect]
     Active Substance: TESTOSTERONE UNDECANOATE
     Indication: Transgender hormonal therapy
     Dosage: 1000 MILLIGRAM, EVERY 12 WEEKS
     Route: 030
     Dates: start: 20110101
  7. ASPIRIN [Concomitant]
     Active Substance: ASPIRIN
     Indication: Product used for unknown indication
     Dosage: 80 MILLIGRAM, DAILY, 1 PIECE(S) ONCE A DAY
     Route: 048
     Dates: start: 20110101
  8. ESOMEPRAZOLE [Concomitant]
     Active Substance: ESOMEPRAZOLE
     Indication: Product used for unknown indication
     Dosage: 40 MILLIGRAM, QD
     Route: 048
     Dates: start: 20110101

REACTIONS (3)
  - Product use in unapproved indication [Unknown]
  - Polycythaemia [Not Recovered/Not Resolved]
  - Product use issue [Unknown]

NARRATIVE: CASE EVENT DATE: 20110101
